FAERS Safety Report 4844728-8 (Version None)
Quarter: 2005Q4

REPORT INFORMATION
  Report Type: 
  Country: None (occurrence: None)
  Receive Date: 20051201
  Receipt Date: 20051201
  Transmission Date: 20060501
  Serious: No
  Sender: FDA-Public Use
  Company Number: None

PATIENT
  Age: 52 Year
  Sex: Male
  Weight: 159.2126 kg

DRUGS (1)
  1. TOPAMAX [Suspect]
     Indication: CARPAL TUNNEL SYNDROME
     Dosage: 1 TAB    BEDTIME  PO
     Route: 048
     Dates: end: 20050103

REACTIONS (3)
  - ANGLE CLOSURE GLAUCOMA [None]
  - NIGHT BLINDNESS [None]
  - VISUAL ACUITY REDUCED [None]
